FAERS Safety Report 12077150 (Version 2)
Quarter: 2016Q1

REPORT INFORMATION
  Report Type: Spontaneous
  Country: JP (occurrence: JP)
  Receive Date: 20160215
  Receipt Date: 20160325
  Transmission Date: 20160526
  Serious: Yes (Death, Other)
  Sender: FDA-Public Use
  Company Number: JP-GLAXOSMITHKLINE-JP2016JPN019952

PATIENT
  Age: 31 Year
  Sex: Male

DRUGS (6)
  1. LAMICTAL [Suspect]
     Active Substance: LAMOTRIGINE
     Indication: BIPOLAR DISORDER
     Dosage: 200 MG, 1D
     Route: 048
     Dates: start: 20150914
  2. ZYPREXA [Concomitant]
     Active Substance: OLANZAPINE
  3. FLUNITRAZEPAM [Concomitant]
     Active Substance: FLUNITRAZEPAM
  4. LIMAS [Concomitant]
     Active Substance: LITHIUM CARBONATE
  5. LAMICTAL [Suspect]
     Active Substance: LAMOTRIGINE
     Indication: MANIA
  6. HALCION [Concomitant]
     Active Substance: TRIAZOLAM

REACTIONS (1)
  - Completed suicide [Fatal]

NARRATIVE: CASE EVENT DATE: 201601
